FAERS Safety Report 6699114-5 (Version None)
Quarter: 2010Q2

REPORT INFORMATION
  Report Type: 
  Country: None (occurrence: None)
  Receive Date: 20100427
  Receipt Date: 20100413
  Transmission Date: 20101027
  Serious: Yes (Other)
  Sender: FDA-Public Use
  Company Number: CA-JNJFOC-20100403983

PATIENT
  Sex: Female
  Weight: 61 kg

DRUGS (5)
  1. REMICADE [Suspect]
     Indication: CROHN'S DISEASE
     Dosage: X 52.  RECEIVED A TOTAL OF 7 INFUSIONS
     Route: 042
  2. SOLU-CORTEF [Concomitant]
     Route: 042
  3. BENADRYL [Concomitant]
     Route: 042
  4. PREDNISONE TAB [Concomitant]
  5. ASACOL [Concomitant]

REACTIONS (5)
  - ABASIA [None]
  - ARTHRALGIA [None]
  - MUSCLE DISORDER [None]
  - MUSCULOSKELETAL PAIN [None]
  - TENDON DISORDER [None]
